FAERS Safety Report 24573022 (Version 1)
Quarter: 2024Q4

REPORT INFORMATION
  Report Type: Other
  Country: US (occurrence: US)
  Receive Date: 20241101
  Receipt Date: 20241101
  Transmission Date: 20250114
  Serious: Yes (Other)
  Sender: NEUROCRINE BIOSCIENCES
  Company Number: US-NEUROCRINE BIOSCIENCES INC.-2024NBI09625

PATIENT
  Age: 64 Year
  Sex: Male

DRUGS (36)
  1. INGREZZA [Suspect]
     Active Substance: VALBENAZINE
     Indication: Tardive dyskinesia
     Dosage: 40 MILLIGRAM, QD
     Route: 048
     Dates: start: 20240918, end: 20240921
  2. INGREZZA [Suspect]
     Active Substance: VALBENAZINE
     Dosage: 80 MILLIGRAM, QD
     Route: 048
     Dates: start: 20240913, end: 20240918
  3. INGREZZA [Suspect]
     Active Substance: VALBENAZINE
     Dosage: 40 MILLIGRAM, QD
     Route: 048
     Dates: start: 20240904, end: 20240913
  4. ESKETAMINE [Concomitant]
     Active Substance: ESKETAMINE
     Indication: Depression
  5. LITHIUM CARBONATE [Concomitant]
     Active Substance: LITHIUM CARBONATE
     Indication: Mania
     Dosage: 600 MILLIGRAM, QHS
     Route: 048
     Dates: start: 20240930
  6. LITHIUM CARBONATE [Concomitant]
     Active Substance: LITHIUM CARBONATE
     Indication: Affect lability
     Dosage: 750 MILLIGRAM
     Route: 048
     Dates: start: 20240521
  7. LITHIUM CARBONATE [Concomitant]
     Active Substance: LITHIUM CARBONATE
     Indication: Insomnia
  8. CLOZAPINE [Concomitant]
     Active Substance: CLOZAPINE
     Indication: Schizoaffective disorder
     Dosage: 300 MILLIGRAM (25 MG,QD;225MG,QHS;50MG,NOON)
     Route: 048
     Dates: start: 20220911
  9. CLOZAPINE [Concomitant]
     Active Substance: CLOZAPINE
     Indication: Psychotic disorder
  10. CHLORPROMAZINE HYDROCHLORIDE [Concomitant]
     Active Substance: CHLORPROMAZINE HYDROCHLORIDE
     Indication: Schizoaffective disorder
     Dosage: 50 MILLIGRAM, PRN
     Route: 048
     Dates: start: 20220911
  11. CHLORPROMAZINE HYDROCHLORIDE [Concomitant]
     Active Substance: CHLORPROMAZINE HYDROCHLORIDE
     Indication: Agitation
  12. CHLORPROMAZINE HYDROCHLORIDE [Concomitant]
     Active Substance: CHLORPROMAZINE HYDROCHLORIDE
     Indication: Aggression
  13. PALIPERIDONE [Concomitant]
     Active Substance: PALIPERIDONE
     Indication: Schizoaffective disorder
     Dosage: 156 MILLIGRAM, Q4WEEKS
     Route: 030
     Dates: start: 20240923
  14. PALIPERIDONE [Concomitant]
     Active Substance: PALIPERIDONE
     Indication: Psychotic disorder
  15. ZYPREXA [Concomitant]
     Active Substance: OLANZAPINE
     Indication: Psychotic disorder
     Dosage: 10 MILLIGRAM, PRN
     Route: 048
     Dates: start: 20220911
  16. THORAZINE [Concomitant]
     Active Substance: CHLORPROMAZINE
     Dosage: 2 MILLILITER, Q6HR
     Route: 030
  17. ZYPREXA IM [Concomitant]
     Dosage: 2 MILLILITER, QD
     Route: 030
  18. ACETAMINOPHEN [Concomitant]
     Active Substance: ACETAMINOPHEN
     Dosage: 2 DOSAGE FORM, TID
     Route: 048
  19. ARICEPT [Concomitant]
     Active Substance: DONEPEZIL HYDROCHLORIDE
     Dosage: 1 DOSAGE FORM, QD
     Route: 048
  20. ATORVASTATIN [Concomitant]
     Active Substance: ATORVASTATIN
     Dosage: 1 DOSAGE FORM, QHS
     Route: 048
  21. ATROPINE [Concomitant]
     Active Substance: ATROPINE
     Dosage: 2 DROPS, TID
  22. BISACODYL [Concomitant]
     Active Substance: BISACODYL
     Dosage: 1 DOSAGE FORM, QD
     Route: 054
  23. CEPACOL SORE THROAT [BENZOCAINE;MENTHOL] [Concomitant]
     Dosage: 1 DOSAGE FORM,Q2HR
     Route: 048
  24. CERAVE THERAPEUTIC HAND [Concomitant]
     Active Substance: DIMETHICONE
     Dosage: 1 APPLICATION, Q6HR
     Route: 061
  25. LATANOPROST [Concomitant]
     Active Substance: LATANOPROST
     Dosage: 1 DROP, QD
     Route: 047
  26. LEVOTHYROXINE [Concomitant]
     Active Substance: LEVOTHYROXINE
     Dosage: 1 DOSAGE FORM, QD
     Route: 048
  27. MAGNESIUM OXIDE [Concomitant]
     Active Substance: MAGNESIUM OXIDE
     Dosage: 1 DOSAGE FORM, BID
     Route: 048
  28. MAGNESIUM HYDROXIDE [Concomitant]
     Active Substance: MAGNESIUM HYDROXIDE
     Dosage: 30 MILLILITER, QD
     Route: 048
  29. MELATONIN [Concomitant]
     Active Substance: MELATONIN
     Dosage: 2 DOSAGE FORM, QHS
     Route: 048
  30. METFORMIN [Concomitant]
     Active Substance: METFORMIN HYDROCHLORIDE
     Dosage: 1 DOSAGE FORM, BID
     Route: 048
  31. METOPROLOL SUCCINATE [Concomitant]
     Active Substance: METOPROLOL SUCCINATE
     Dosage: 1 DOSAGE FORM, QD
     Route: 048
  32. MIRALAX [Concomitant]
     Active Substance: POLYETHYLENE GLYCOL 3350
     Dosage: 1 DOSAGE FORM, BID
     Route: 048
  33. NORVASC [Concomitant]
     Active Substance: AMLODIPINE BESYLATE
     Dosage: 1 DOSAGE FORM, QD
     Route: 048
  34. OCEAN SALINE NASAL SPRAY [Concomitant]
     Active Substance: SODIUM CHLORIDE
     Dosage: 0.65%= 1 SPRAY, BOTH NOSTRILS, TID
     Route: 045
  35. SENNOSIDES [Concomitant]
     Active Substance: SENNOSIDES
     Dosage: 2 DOSAGE FORM, QHS (8.6 MG-50 MG)
     Route: 048
  36. SIMETHICONE (DIMETHICONE) [Concomitant]
     Active Substance: DIMETHICONE
     Dosage: 1 DOSAGE FORM, QD
     Route: 048

REACTIONS (6)
  - Suicidal ideation [Recovered/Resolved]
  - Depressed mood [Recovering/Resolving]
  - Anxiety [Recovering/Resolving]
  - Memory impairment [Unknown]
  - Vision blurred [Unknown]
  - Gait disturbance [Unknown]

NARRATIVE: CASE EVENT DATE: 20240917
